FAERS Safety Report 5833287-9 (Version None)
Quarter: 2008Q3

REPORT INFORMATION
  Report Type: 
  Country: None (occurrence: None)
  Receive Date: 20080804
  Receipt Date: 20080804
  Transmission Date: 20090109
  Serious: No
  Sender: FDA-Public Use
  Company Number: None

PATIENT
  Sex: Male
  Weight: 99.7913 kg

DRUGS (1)
  1. JANUVIA [Suspect]
     Dosage: 100MG DAILY ORAL
     Route: 048
     Dates: start: 20080718, end: 20080725

REACTIONS (3)
  - ERYTHEMA MULTIFORME [None]
  - HYPERAESTHESIA [None]
  - HYPERSENSITIVITY [None]
